FAERS Safety Report 8966102 (Version 1)
Quarter: 2012Q4

REPORT INFORMATION
  Report Type: 
  Country: NL (occurrence: NL)
  Receive Date: 20121217
  Receipt Date: 20121217
  Transmission Date: 20130627
  Serious: Yes (Other)
  Sender: FDA-Public Use
  Company Number: NL-AMGEN-NLDSP2012071949

PATIENT
  Age: 54 Year
  Sex: Female
  Weight: 65 kg

DRUGS (3)
  1. ENBREL [Suspect]
     Indication: PRODUCT USED FOR UNKNOWN INDICATION
     Dosage: 50 mg, UNK
     Route: 058
  2. VOLTAREN                           /00372301/ [Concomitant]
     Dosage: UNK
  3. SALAZOPYRINE [Concomitant]
     Indication: SPONDYLOARTHROPATHY
     Dosage: 500 mg, UNK
     Route: 048

REACTIONS (2)
  - Decreased immune responsiveness [Unknown]
  - Pyelonephritis [Recovering/Resolving]
